FAERS Safety Report 5208039-3 (Version None)
Quarter: 2007Q1

REPORT INFORMATION
  Report Type: 
  Country: None (occurrence: None)
  Receive Date: 20070115
  Receipt Date: 20070110
  Transmission Date: 20070707
  Serious: Yes (Death, Hospitalization)
  Sender: FDA-Public Use
  Company Number: CA-BAYER-200611736GDS

PATIENT
  Age: 55 Year
  Sex: Male
  Weight: 64 kg

DRUGS (11)
  1. SORAFENIB [Suspect]
     Indication: RENAL CELL CARCINOMA STAGE UNSPECIFIED
     Dosage: TOTAL DAILY DOSE: 800 MG
     Route: 048
     Dates: start: 20060411, end: 20060427
  2. DEXAMETHASONE [Concomitant]
     Indication: PAIN
     Route: 048
     Dates: start: 20060108
  3. MORPHINE STATEX [Concomitant]
     Indication: PAIN
     Route: 048
     Dates: start: 20060108
  4. MS CONTIN [Concomitant]
     Indication: PAIN
     Dosage: TOTAL DAILY DOSE: 180 MG
     Route: 048
     Dates: start: 20060108
  5. LIPITOR [Concomitant]
     Indication: BLOOD CHOLESTEROL INCREASED
     Route: 048
     Dates: start: 20020101
  6. PLAVIX [Concomitant]
     Indication: TRANSIENT ISCHAEMIC ATTACK
     Route: 065
     Dates: start: 20051001
  7. SAFLAX [Concomitant]
     Indication: CONSTIPATION
     Route: 065
     Dates: start: 20060108
  8. LORAZEPAM [Concomitant]
     Indication: SLEEP DISORDER
     Route: 065
     Dates: start: 20060108
  9. SENOKOT [Concomitant]
     Indication: CONSTIPATION
     Route: 065
     Dates: start: 20060108
  10. DOCUSATE SODIUM [Concomitant]
     Indication: CONSTIPATION
     Route: 065
     Dates: start: 20060108
  11. LACTULOSE [Concomitant]
     Indication: CONSTIPATION
     Route: 065
     Dates: start: 20060420

REACTIONS (4)
  - CONFUSIONAL STATE [None]
  - COORDINATION ABNORMAL [None]
  - DELIRIUM [None]
  - FATIGUE [None]
